FAERS Safety Report 12997508 (Version 2)
Quarter: 2016Q4

REPORT INFORMATION
  Report Type: Report from Study
  Country: US (occurrence: US)
  Receive Date: 20161205
  Receipt Date: 20161230
  Transmission Date: 20170207
  Serious: No
  Sender: FDA-Public Use
  Company Number: PHEH2016US031129

PATIENT
  Age: 11 Year
  Sex: Male
  Weight: 74 kg

DRUGS (1)
  1. ILARIS [Suspect]
     Active Substance: CANAKINUMAB
     Indication: JUVENILE IDIOPATHIC ARTHRITIS
     Dosage: 300 MG, QMO
     Route: 065

REACTIONS (6)
  - Nasopharyngitis [Unknown]
  - Pyrexia [Recovered/Resolved]
  - Pain [Unknown]
  - Cough [Recovered/Resolved]
  - Cough [Unknown]
  - Pyrexia [Unknown]

NARRATIVE: CASE EVENT DATE: 20161118
